FAERS Safety Report 23048940 (Version 2)
Quarter: 2024Q4

REPORT INFORMATION
  Report Type: Report from Study
  Country: US (occurrence: US)
  Receive Date: 20231010
  Receipt Date: 20241029
  Transmission Date: 20250114
  Serious: Yes (Hospitalization)
  Sender: ACCORD
  Company Number: US-Accord-382509

PATIENT
  Age: 50 Year
  Sex: Female

DRUGS (1)
  1. CLOZAPINE [Suspect]
     Active Substance: CLOZAPINE
     Indication: Product used for unknown indication
     Route: 048

REACTIONS (5)
  - Pyrexia [Unknown]
  - Chest pain [Unknown]
  - Cough [Unknown]
  - Abdominal pain [Unknown]
  - Back pain [Unknown]
